FAERS Safety Report 9407301 (Version 2)
Quarter: 2013Q3

REPORT INFORMATION
  Report Type: Spontaneous
  Country: ZA (occurrence: ZA)
  Receive Date: 20130718
  Receipt Date: 20130801
  Transmission Date: 20140515
  Serious: Yes (Hospitalization, Other)
  Sender: FDA-Public Use
  Company Number: ZA-PFIZER INC-2013206928

PATIENT
  Age: 66 Year
  Sex: Male

DRUGS (3)
  1. AVIGRA [Suspect]
     Indication: ERECTILE DYSFUNCTION
     Dosage: AVERAGE OF 8X100 MG PER MONTH, AVERAGE OF 2 PER WEEKEND (FRIDAY TO SUNDAY)
     Route: 048
     Dates: start: 201206
  2. ADCO-ZILDEM 180 SR [Concomitant]
     Dosage: 1 DF, 1X/DAY (180 SR)
     Route: 048
     Dates: start: 201212
  3. ASPIRIN ^BAYER^ [Concomitant]
     Dosage: UNK, 1X/DAY
     Route: 048
     Dates: start: 201212

REACTIONS (2)
  - Carpal tunnel syndrome [Unknown]
  - Paraesthesia [Unknown]
